FAERS Safety Report 8114973-7 (Version None)
Quarter: 2012Q1

REPORT INFORMATION
  Report Type: 
  Country: None (occurrence: None)
  Receive Date: 20120131
  Receipt Date: 20120112
  Transmission Date: 20120608
  Serious: Yes (Life-Threatening)
  Sender: FDA-Public Use
  Company Number: 2012SP004412

PATIENT

DRUGS (1)
  1. TEMOZOLOMIDE [Suspect]
     Indication: GLIOBLASTOMA

REACTIONS (3)
  - HAEMATOTOXICITY [None]
  - BONE MARROW TOXICITY [None]
  - TOXICITY TO VARIOUS AGENTS [None]
